FAERS Safety Report 4646289-5 (Version None)
Quarter: 2005Q2

REPORT INFORMATION
  Report Type: 
  Country: None (occurrence: None)
  Receive Date: 20050425
  Receipt Date: 20050418
  Transmission Date: 20051028
  Serious: Yes (Other)
  Sender: FDA-Public Use
  Company Number: 800344

PATIENT
  Age: 49 Year
  Sex: Female
  Weight: 118 kg

DRUGS (2)
  1. DIANEAL PD-2 W/ DEXTROSE 1.5% [Suspect]
     Dosage: INTRAPERITONEAL
     Route: 033
  2. HUMULIN 70/30 [Concomitant]

REACTIONS (7)
  - CATHETER SITE ERYTHEMA [None]
  - CATHETER SITE RELATED REACTION [None]
  - CELLULITIS [None]
  - INJURY [None]
  - PERITONITIS [None]
  - SCAB [None]
  - STAPHYLOCOCCAL INFECTION [None]
